FAERS Safety Report 23277157 (Version 1)
Quarter: 2023Q4

REPORT INFORMATION
  Report Type: Report from Study
  Country: US (occurrence: US)
  Receive Date: 20231208
  Receipt Date: 20231208
  Transmission Date: 20240110
  Serious: Yes (Death)
  Sender: FDA-Public Use
  Company Number: US-JNJFOC-20231149251

PATIENT
  Age: 86 Year
  Sex: Male

DRUGS (2)
  1. RIVAROXABAN [Suspect]
     Active Substance: RIVAROXABAN
     Indication: Cerebral infarction
     Route: 048
  2. RIVAROXABAN [Suspect]
     Active Substance: RIVAROXABAN
     Indication: Precerebral artery embolism

REACTIONS (1)
  - Death [Fatal]
